FAERS Safety Report 8193973-5 (Version None)
Quarter: 2012Q1

REPORT INFORMATION
  Report Type: 
  Country: None (occurrence: None)
  Receive Date: 20120308
  Receipt Date: 20120228
  Transmission Date: 20120608
  Serious: Yes (Other)
  Sender: FDA-Public Use
  Company Number: US-ASTRAZENECA-2012SE14150

PATIENT
  Sex: Male

DRUGS (2)
  1. NEXIUM [Suspect]
     Route: 048
  2. PRILOSEC OTC [Suspect]
     Route: 048

REACTIONS (5)
  - NEOPLASM MALIGNANT [None]
  - MESOTHELIOMA [None]
  - GASTROOESOPHAGEAL REFLUX DISEASE [None]
  - EXPOSURE TO CHEMICAL POLLUTION [None]
  - DRUG INEFFECTIVE [None]
